FAERS Safety Report 16810030 (Version 7)
Quarter: 2021Q2

REPORT INFORMATION
  Report Type: Report from Study
  Country: US (occurrence: US)
  Receive Date: 20190916
  Receipt Date: 20210412
  Transmission Date: 20210716
  Serious: Yes (Other)
  Sender: FDA-Public Use
  Company Number: PHEH2019US037978

PATIENT
  Sex: Female

DRUGS (1)
  1. COSENTYX [Suspect]
     Active Substance: SECUKINUMAB
     Indication: PRODUCT USED FOR UNKNOWN INDICATION
     Dosage: UNK
     Route: 065

REACTIONS (10)
  - Blood glucose increased [Unknown]
  - Skin plaque [Unknown]
  - Skin exfoliation [Unknown]
  - Psoriasis [Unknown]
  - Diabetes mellitus [Unknown]
  - Feeling abnormal [Unknown]
  - COVID-19 [Unknown]
  - Rash [Unknown]
  - Macule [Unknown]
  - Discomfort [Unknown]
